FAERS Safety Report 17423605 (Version 3)
Quarter: 2020Q1

REPORT INFORMATION
  Report Type: Report from Study
  Country: None (occurrence: CH)
  Receive Date: 20200217
  Receipt Date: 20200225
  Transmission Date: 20200409
  Serious: Yes (Death)
  Sender: FDA-Public Use
  Company Number: CH-ABBVIE-20K-151-3277515-00

PATIENT
  Age: 80 Year
  Sex: Female

DRUGS (3)
  1. DUODOPA [Suspect]
     Active Substance: CARBIDOPA\LEVODOPA
     Dosage: MD11ML, CONTINUOUS RATE-DAY 2.4ML/H, ED 1ML; 1 CASSETTE PER DAY,16H THERAPY
     Route: 050
     Dates: start: 20191221, end: 20191230
  2. DUODOPA [Suspect]
     Active Substance: CARBIDOPA\LEVODOPA
     Indication: PARKINSON^S DISEASE
     Route: 050
     Dates: start: 20191114, end: 20191221
  3. DUODOPA [Suspect]
     Active Substance: CARBIDOPA\LEVODOPA
     Dosage: MD 11ML, CONTINUOUS RATE-DAY 2.5ML/H, EXTRA DOSE 1ML; 1 CASSETTE PER DAY,16H THERAPY
     Route: 050
     Dates: start: 20191230, end: 202002

REACTIONS (1)
  - Assisted suicide [Fatal]

NARRATIVE: CASE EVENT DATE: 20200213
